FAERS Safety Report 5486025-6 (Version None)
Quarter: 2007Q4

REPORT INFORMATION
  Report Type: 
  Country: None (occurrence: None)
  Receive Date: 20071012
  Receipt Date: 20071008
  Transmission Date: 20080405
  Serious: Yes (Other)
  Sender: FDA-Public Use
  Company Number: 2007SP011095

PATIENT
  Age: 44 Year
  Sex: Male

DRUGS (1)
  1. PEGATRON (PEGYLATED INTERFERON ALFA-2B W/RIBAVIRIN) [Suspect]
     Indication: HEPATITIS C
     Dosage: ; SC, ; PO

REACTIONS (5)
  - DEEP VEIN THROMBOSIS [None]
  - DISORIENTATION [None]
  - DYSPNOEA [None]
  - EMOTIONAL DISORDER [None]
  - VISUAL ACUITY REDUCED [None]
